FAERS Safety Report 12590023 (Version 1)
Quarter: 2016Q3

REPORT INFORMATION
  Report Type: Spontaneous
  Country: US (occurrence: US)
  Receive Date: 20160725
  Receipt Date: 20160725
  Transmission Date: 20161109
  Serious: No
  Sender: FDA-Public Use
  Company Number: US-B.I. PHARMACEUTICALS,INC./RIDGEFIELD-2016-BI-44450BP

PATIENT
  Age: 66 Year
  Sex: Female

DRUGS (3)
  1. DULERA [Concomitant]
     Active Substance: FORMOTEROL FUMARATE DIHYDRATE\MOMETASONE FUROATE
     Indication: CHRONIC OBSTRUCTIVE PULMONARY DISEASE
     Dosage: 4 ANZ
     Route: 065
  2. LIALDA [Concomitant]
     Active Substance: MESALAMINE
     Indication: COLITIS ULCERATIVE
     Dosage: 4 ANZ
     Route: 065
  3. SPIRIVA [Suspect]
     Active Substance: TIOTROPIUM BROMIDE MONOHYDRATE
     Indication: CHRONIC OBSTRUCTIVE PULMONARY DISEASE
     Dosage: 4 ANZ
     Route: 055
     Dates: start: 2016

REACTIONS (3)
  - Depressed mood [Recovered/Resolved]
  - Dyspnoea [Not Recovered/Not Resolved]
  - Crying [Recovered/Resolved]

NARRATIVE: CASE EVENT DATE: 20160706
